FAERS Safety Report 24254483 (Version 2)
Quarter: 2024Q4

REPORT INFORMATION
  Report Type: Spontaneous
  Country: GB (occurrence: GB)
  Receive Date: 20240827
  Receipt Date: 20241016
  Transmission Date: 20250114
  Serious: Yes (Death, Other)
  Sender: TEVA
  Company Number: GB-OTSUKA-2024_022103

PATIENT
  Age: 35 Year
  Sex: Male
  Weight: 70 kg

DRUGS (6)
  1. ARIPIPRAZOLE [Suspect]
     Active Substance: ARIPIPRAZOLE
     Indication: Product used for unknown indication
     Dosage: UNK
     Route: 048
     Dates: start: 2020
  2. ESCITALOPRAM [Concomitant]
     Active Substance: ESCITALOPRAM OXALATE
     Indication: Depression
     Dosage: 10 MG (FOR SEVERAL MONTHS)
     Route: 048
     Dates: start: 20240412
  3. ESCITALOPRAM [Concomitant]
     Active Substance: ESCITALOPRAM OXALATE
     Indication: Depression
     Dosage: UNK (6 WEEKS PRIOR TO DEATH)
     Route: 048
  4. KETAMINE [Concomitant]
     Active Substance: KETAMINE
     Indication: Product used for unknown indication
     Dosage: UNK
  5. OXYBATE [Concomitant]
     Active Substance: OXYBATE
     Indication: Product used for unknown indication
     Dosage: UNK
  6. ABILIFY MAINTENA [Suspect]
     Active Substance: ARIPIPRAZOLE
     Indication: Product used for unknown indication
     Dosage: 400 MG, QM (FOR MANY YEARS)
     Route: 065
     Dates: start: 2021

REACTIONS (1)
  - Completed suicide [Fatal]

NARRATIVE: CASE EVENT DATE: 20240531
